FAERS Safety Report 7477688-4 (Version None)
Quarter: 2011Q2

REPORT INFORMATION
  Report Type: 
  Country: None (occurrence: None)
  Receive Date: 20110513
  Receipt Date: 20110405
  Transmission Date: 20111010
  Serious: Yes (Other)
  Sender: FDA-Public Use
  Company Number: US-BAYER-201041437NA

PATIENT
  Age: 40 Year
  Sex: Female
  Weight: 122.45 kg

DRUGS (12)
  1. NEXIUM [Concomitant]
  2. DROSPIRENONE AND ETHINYL ESTRADIOL [Suspect]
     Indication: ACNE
  3. OVCON-35 [Concomitant]
  4. YAZ [Suspect]
     Indication: CONTRACEPTION
  5. DROSPIRENONE AND ETHINYL ESTRADIOL [Suspect]
     Indication: CONTRACEPTION
  6. RED BLOOD CELLS [Concomitant]
     Dosage: 2 UNITS PACKED
     Dates: start: 20030521
  7. YAZ [Suspect]
     Indication: ACNE
  8. METFORMIN HCL [Concomitant]
  9. ASPIRIN [Concomitant]
     Dosage: UNK
     Dates: end: 20030521
  10. SYNTHROID [Concomitant]
     Dosage: 0.2 MG, QD
  11. YASMIN [Suspect]
     Indication: ACNE
  12. YASMIN [Suspect]
     Indication: CONTRACEPTION

REACTIONS (3)
  - INJURY [None]
  - CHOLELITHIASIS [None]
  - CHOLECYSTITIS [None]
